FAERS Safety Report 4300291-1 (Version None)
Quarter: 2004Q1

REPORT INFORMATION
  Report Type: 
  Country: None (occurrence: None)
  Receive Date: 20040218
  Receipt Date: 20040203
  Transmission Date: 20041129
  Serious: Yes (Other)
  Sender: FDA-Public Use
  Company Number: USA040258356

PATIENT
  Age: 40 Year
  Sex: Male

DRUGS (1)
  1. FORTEO [Suspect]
     Indication: OSTEOPOROSIS
     Dosage: 20 UG/DAY
     Dates: start: 20030301

REACTIONS (3)
  - ACCIDENT AT HOME [None]
  - BURNS SECOND DEGREE [None]
  - BURNS THIRD DEGREE [None]
